FAERS Safety Report 22026562 (Version 1)
Quarter: 2023Q1

REPORT INFORMATION
  Report Type: Spontaneous
  Country: US (occurrence: None)
  Receive Date: 20230223
  Receipt Date: 20230223
  Transmission Date: 20230418
  Serious: No
  Sender: FDA-Public Use
  Company Number: US-ROCHE-3175000

PATIENT
  Sex: Female

DRUGS (2)
  1. XOLAIR [Suspect]
     Active Substance: OMALIZUMAB
     Indication: Idiopathic urticaria
     Dosage: STRENGTH: 150MG/ML
     Route: 058
     Dates: start: 20220208
  2. XOLAIR [Suspect]
     Active Substance: OMALIZUMAB

REACTIONS (10)
  - Weight increased [Unknown]
  - Urticaria [Unknown]
  - Swelling [Unknown]
  - Depressed mood [Unknown]
  - Hypersensitivity [Unknown]
  - Injection site erythema [Unknown]
  - Lip erythema [Unknown]
  - Decreased appetite [Unknown]
  - Limb mass [Unknown]
  - Pruritus [Unknown]
